FAERS Safety Report 4286341-X (Version None)
Quarter: 2004Q1

REPORT INFORMATION
  Report Type: 
  Country: None (occurrence: None)
  Receive Date: 20040121
  Receipt Date: 20030722
  Transmission Date: 20041129
  Serious: Yes (Other)
  Sender: FDA-Public Use
  Company Number: A03200301633

PATIENT
  Age: 72 Year
  Sex: Male
  Weight: 105 kg

DRUGS (1)
  1. PLAVIX [Suspect]
     Indication: ANGINA PECTORIS
     Dosage: 300 MG ONCE - ORAL
     Route: 048
     Dates: start: 20030722

REACTIONS (3)
  - ANGIONEUROTIC OEDEMA [None]
  - CHEST DISCOMFORT [None]
  - RESPIRATORY RATE INCREASED [None]
